FAERS Safety Report 25179788 (Version 3)
Quarter: 2025Q2

REPORT INFORMATION
  Report Type: Spontaneous
  Country: US (occurrence: US)
  Receive Date: 20250409
  Receipt Date: 20250429
  Transmission Date: 20250717
  Serious: No
  Sender: PFIZER
  Company Number: US-PFIZER INC-202500065814

PATIENT
  Age: 16 Year
  Sex: Male
  Weight: 61.23 kg

DRUGS (1)
  1. GENOTROPIN [Suspect]
     Active Substance: SOMATROPIN
     Indication: Growth disorder
     Dosage: 3 MG, 1X/DAY
     Route: 058
     Dates: start: 202406

REACTIONS (2)
  - Drug dose omission by device [Unknown]
  - Device information output issue [Unknown]
